FAERS Safety Report 5356500-3 (Version None)
Quarter: 2007Q2

REPORT INFORMATION
  Report Type: 
  Country: None (occurrence: None)
  Receive Date: 20070530
  Receipt Date: 20061023
  Transmission Date: 20071010
  Serious: Yes (Hospitalization)
  Sender: FDA-Public Use
  Company Number: US200608005877

PATIENT
  Age: 24 Year
  Sex: Female
  Weight: 121.1 kg

DRUGS (7)
  1. ZYPREXA [Suspect]
     Dates: start: 19980101, end: 20020101
  2. CLOZAPINE [Concomitant]
  3. SEROQUEL [Concomitant]
  4. RISPERDAL                /SWE/ (RISPERIDONE) [Concomitant]
  5. THORAZINE [Concomitant]
  6. REMERON [Concomitant]
  7. ZOLOFT [Concomitant]

REACTIONS (7)
  - BILIARY TRACT DISORDER [None]
  - BLOOD TRIGLYCERIDES INCREASED [None]
  - DIABETES MELLITUS [None]
  - DIABETIC KETOACIDOSIS [None]
  - HYPERTENSION [None]
  - METABOLIC DISORDER [None]
  - OBESITY [None]
